FAERS Safety Report 7515294-3 (Version None)
Quarter: 2011Q2

REPORT INFORMATION
  Report Type: 
  Country: None (occurrence: None)
  Receive Date: 20110425
  Receipt Date: 20100129
  Transmission Date: 20111010
  Serious: Yes (Death)
  Sender: FDA-Public Use
  Company Number: MC201000036

PATIENT
  Age: 51 Year
  Sex: Male

DRUGS (1)
  1. ANGIOMAX [Suspect]
     Indication: CATHETERISATION CARDIAC
     Dates: start: 20090711

REACTIONS (2)
  - DEVICE COMPUTER ISSUE [None]
  - CORONARY ARTERY THROMBOSIS [None]
